FAERS Safety Report 7844340-2 (Version None)
Quarter: 2011Q4

REPORT INFORMATION
  Report Type: 
  Country: None (occurrence: None)
  Receive Date: 20111025
  Receipt Date: 20111020
  Transmission Date: 20120403
  Serious: Yes (Hospitalization)
  Sender: FDA-Public Use
  Company Number: US-SANOFI-AVENTIS-2011SA032912

PATIENT
  Age: 65 Year
  Sex: Female

DRUGS (4)
  1. LANTUS [Suspect]
     Dosage: 25 UNITS IN THE MORNING AND 50 UNITS IN THE EVENING
     Route: 058
     Dates: start: 20070501
  2. SOLOSTAR [Suspect]
     Dates: start: 20070501
  3. LANTUS [Suspect]
     Dosage: 60 UNITS IN THE MORNING AND 40 UNITS IN THE EVENING
     Route: 058
  4. SOLOSTAR [Suspect]
     Dates: start: 20070501

REACTIONS (5)
  - FALL [None]
  - BLOOD GLUCOSE DECREASED [None]
  - BLOOD GLUCOSE INCREASED [None]
  - DRUG DOSE OMISSION [None]
  - FOOT FRACTURE [None]
